FAERS Safety Report 5073378-6 (Version None)
Quarter: 2006Q3

REPORT INFORMATION
  Report Type: 
  Country: None (occurrence: None)
  Receive Date: 20060803
  Receipt Date: 20060719
  Transmission Date: 20061208
  Serious: Yes (Hospitalization, Other)
  Sender: FDA-Public Use
  Company Number: US200607003611

PATIENT
  Age: 75 Year
  Sex: Female

DRUGS (4)
  1. EVISTA [Suspect]
     Indication: OSTEOPOROSIS PROPHYLAXIS
  2. ATENOLOL [Concomitant]
  3. LOPID [Concomitant]
  4. ASPIRIN [Concomitant]

REACTIONS (3)
  - BLINDNESS [None]
  - DIZZINESS [None]
  - IMPAIRED DRIVING ABILITY [None]
